FAERS Safety Report 22039597 (Version 1)
Quarter: 2023Q1

REPORT INFORMATION
  Report Type: Spontaneous
  Country: US (occurrence: None)
  Receive Date: 20230226
  Receipt Date: 20230226
  Transmission Date: 20230417
  Serious: Yes (Disabling, Other)
  Sender: FDA-Public Use
  Company Number: None

PATIENT
  Age: 68 Year
  Sex: Female
  Weight: 54 kg

DRUGS (17)
  1. CARBOXYMETHYLCELLULOSE SODIUM [Suspect]
     Active Substance: CARBOXYMETHYLCELLULOSE SODIUM
     Indication: Dry eye
     Dosage: OTHER QUANTITY : 1 TOPICAL GEL;?FREQUENCY : TWICE A DAY;?OTHER ROUTE : APPLIED TO INNER EYELID;?
     Route: 050
     Dates: start: 20221212, end: 20230225
  2. AMLODIPINE BESYLATE [Concomitant]
     Active Substance: AMLODIPINE BESYLATE
  3. METOPROLOL SUCCINATE [Concomitant]
     Active Substance: METOPROLOL SUCCINATE
  4. ARMOUR THYROID [Concomitant]
     Active Substance: THYROID, PORCINE
  5. BACLOFEN [Concomitant]
     Active Substance: BACLOFEN
  6. PILOCARPINE [Concomitant]
     Active Substance: PILOCARPINE
  7. Cequa eye drops [Concomitant]
  8. ESTRADIOL [Concomitant]
     Active Substance: ESTRADIOL
  9. OXYTROL [Concomitant]
     Active Substance: OXYBUTYNIN
  10. RIZATRIPTAN [Concomitant]
     Active Substance: RIZATRIPTAN
  11. Barlean^s Omega 3, 6, and 9 [Concomitant]
  12. B Complex chewable [Concomitant]
  13. MELATONIN [Concomitant]
     Active Substance: MELATONIN
  14. ZINC [Concomitant]
     Active Substance: ZINC
  15. D3/K2 [Concomitant]
  16. BROMELAINS [Concomitant]
     Active Substance: BROMELAINS
  17. PROBIOTICS NOS [Concomitant]
     Active Substance: PROBIOTICS NOS

REACTIONS (7)
  - Vertigo [None]
  - Nausea [None]
  - Blood pressure increased [None]
  - Neck pain [None]
  - Diarrhoea [None]
  - Kidney infection [None]
  - Urinary tract infection [None]

NARRATIVE: CASE EVENT DATE: 20230214
